FAERS Safety Report 11898186 (Version 1)
Quarter: 2016Q1

REPORT INFORMATION
  Report Type: Report from Study
  Country: JP (occurrence: JP)
  Receive Date: 20160108
  Receipt Date: 20160108
  Transmission Date: 20160526
  Serious: Yes (Other)
  Sender: FDA-Public Use
  Company Number: JP-BRISTOL-MYERS SQUIBB COMPANY-12693479

PATIENT
  Age: 34 Year
  Sex: Female

DRUGS (3)
  1. VIRACEPT [Suspect]
     Active Substance: NELFINAVIR MESYLATE
     Indication: HIV INFECTION
     Route: 048
     Dates: start: 19990518
  2. STAVUDINE. [Suspect]
     Active Substance: STAVUDINE
     Indication: HIV INFECTION
     Dosage: 40 MG, BID
     Route: 048
  3. EPIVIR [Suspect]
     Active Substance: LAMIVUDINE
     Indication: HIV INFECTION
     Dosage: 150 MG, BID
     Route: 048
     Dates: start: 19990518

REACTIONS (4)
  - Caesarean section [Unknown]
  - Pregnancy [Recovered/Resolved]
  - Bacterial toxaemia [Recovering/Resolving]
  - Premature delivery [Unknown]

NARRATIVE: CASE EVENT DATE: 20040106
